FAERS Safety Report 20750633 (Version 2)
Quarter: 2022Q3

REPORT INFORMATION
  Report Type: Spontaneous
  Country: US (occurrence: US)
  Receive Date: 20220426
  Receipt Date: 20220727
  Transmission Date: 20221027
  Serious: Yes (Other)
  Sender: FDA-Public Use
  Company Number: US-PFIZER INC-202101419134

PATIENT
  Age: 50 Year
  Sex: Female

DRUGS (1)
  1. XELJANZ XR [Suspect]
     Active Substance: TOFACITINIB CITRATE
     Indication: Rheumatoid arthritis
     Dosage: 11 MG, 1X/DAY
     Route: 048
     Dates: start: 20210913

REACTIONS (10)
  - Systemic lupus erythematosus [Unknown]
  - Hyperhidrosis [Unknown]
  - COVID-19 [Unknown]
  - Condition aggravated [Unknown]
  - Gait disturbance [Unknown]
  - Joint swelling [Unknown]
  - Pain [Unknown]
  - Discouragement [Unknown]
  - Depression [Unknown]
  - Anxiety [Not Recovered/Not Resolved]

NARRATIVE: CASE EVENT DATE: 20210101
